FAERS Safety Report 5227715-X (Version None)
Quarter: 2007Q1

REPORT INFORMATION
  Report Type: 
  Country: None (occurrence: None)
  Receive Date: 20070202
  Receipt Date: 20070123
  Transmission Date: 20070707
  Serious: Yes (Other)
  Sender: FDA-Public Use
  Company Number: AT-PFIZER INC-2007006308

PATIENT
  Sex: Female

DRUGS (1)
  1. DEPOCON [Suspect]
     Indication: CONTRACEPTION
     Route: 030
     Dates: start: 20050101, end: 20050101

REACTIONS (2)
  - HYPERTENSION [None]
  - WEIGHT INCREASED [None]
